FAERS Safety Report 6311547-5 (Version None)
Quarter: 2009Q3

REPORT INFORMATION
  Report Type: 
  Country: None (occurrence: None)
  Receive Date: 20090817
  Receipt Date: 20090805
  Transmission Date: 20100115
  Serious: Yes (Life-Threatening, Hospitalization)
  Sender: FDA-Public Use
  Company Number: GB-PFIZER INC-2009250361

PATIENT
  Age: 86 Year

DRUGS (10)
  1. GABAPENTIN [Suspect]
     Indication: NEURALGIA
     Dosage: 300 MG, 3X/DAY
     Route: 048
     Dates: start: 20090714, end: 20090717
  2. ALENDRONIC ACID [Concomitant]
     Dosage: 70 MG, WEEKLY
  3. CLOPIDOGREL [Concomitant]
     Dosage: 70 MG, 1X/DAY
  4. FUROSEMIDE [Concomitant]
     Dosage: 40 MG, 1X/DAY
  5. OMEPRAZOLE [Concomitant]
     Dosage: 10 MG, 1X/DAY
  6. MIRTAZAPINE [Concomitant]
     Dosage: 30 MG, 1X/DAY
  7. PARACETAMOL [Concomitant]
  8. SIMVASTATIN [Concomitant]
     Dosage: 20 MG, 1X/DAY
  9. TRAMADOL HYDROCHLORIDE [Concomitant]
     Dosage: 100 MG, 4X/DAY
  10. ZOPICLONE [Concomitant]
     Dosage: 3.75 MG, 1X/DAY

REACTIONS (4)
  - ALANINE AMINOTRANSFERASE INCREASED [None]
  - HEPATIC ENCEPHALOPATHY [None]
  - INTERNATIONAL NORMALISED RATIO INCREASED [None]
  - MYOCLONUS [None]
